FAERS Safety Report 5580047-2 (Version None)
Quarter: 2007Q4

REPORT INFORMATION
  Report Type: 
  Country: None (occurrence: None)
  Receive Date: 20071228
  Receipt Date: 20071218
  Transmission Date: 20080405
  Serious: Yes (Hospitalization)
  Sender: FDA-Public Use
  Company Number: 2007EU002685

PATIENT
  Age: 71 Year
  Sex: Male
  Weight: 48 kg

DRUGS (10)
  1. VESICARE [Suspect]
     Indication: INCONTINENCE
     Dosage: 10 MG; 5 MG, /D, ORAL
     Route: 048
     Dates: start: 20071001, end: 20071019
  2. DECAPEPTYL (TRIPTORELIN EMBONATE) [Concomitant]
  3. ANDROCUR (CYPROTERONE ACETATE) [Concomitant]
  4. FOSAMAX [Concomitant]
  5. AMLODIPINE BESYLATE [Concomitant]
  6. CRESTOR [Concomitant]
  7. SOTALOL HCL [Concomitant]
  8. SEROQUEL [Concomitant]
  9. LORAMET (LORMETAZEPAM) [Concomitant]
  10. HALDOL (HALOPERIDOL DECANOATE) [Concomitant]

REACTIONS (3)
  - COGNITIVE DISORDER [None]
  - CONFUSIONAL STATE [None]
  - SPEECH DISORDER [None]
